FAERS Safety Report 8097898-5 (Version None)
Quarter: 2012Q1

REPORT INFORMATION
  Report Type: 
  Country: None (occurrence: None)
  Receive Date: 20120128
  Receipt Date: 20110720
  Transmission Date: 20120608
  Serious: No
  Sender: FDA-Public Use
  Company Number: US-ABBOTT-11P-163-0840681-00

PATIENT
  Age: 35 Year
  Sex: Female

DRUGS (5)
  1. HUMIRA [Suspect]
     Indication: PSORIASIS
     Dates: start: 20110201
  2. HYDROCHLOROTHIAZIDE [Concomitant]
     Indication: HYPERTENSION
  3. METOPROLOL TARTRATE [Concomitant]
     Indication: HYPERTENSION
  4. DICLOFENAC SODIUM [Concomitant]
     Indication: INFLAMMATION
  5. DICLOFENAC SODIUM [Concomitant]
     Indication: CARPAL TUNNEL SYNDROME

REACTIONS (2)
  - DRUG DOSE OMISSION [None]
  - PSORIASIS [None]
